FAERS Safety Report 23106460 (Version 1)
Quarter: 2023Q4

REPORT INFORMATION
  Report Type: Spontaneous
  Country: CA (occurrence: CA)
  Receive Date: 20231025
  Receipt Date: 20231025
  Transmission Date: 20240109
  Serious: Yes (Death, Life-Threatening, Hospitalization, Disabling, Other)
  Sender: FDA-Public Use
  Company Number: CA-BAXTER-2023BAX033810

PATIENT
  Age: 80 Year
  Sex: Male
  Weight: 69 kg

DRUGS (110)
  1. HEPARIN SODIUM [Suspect]
     Active Substance: HEPARIN SODIUM
     Indication: Off label use
     Dosage: AT AN UNSPECIFIED DOSE AND FREQUENCY (DOSAGE FORM: SOLUTION FOR INFUSION)
     Route: 065
  2. HEPARIN SODIUM [Suspect]
     Active Substance: HEPARIN SODIUM
     Indication: Intentional product misuse
     Dosage: 250 MG (MILLIGRAM) AT AN UNSPECIFIED FREQUENCY (DOSAGE FORM: SOLUTION FOR INFUSION)
     Route: 042
  3. HEPARIN SODIUM [Suspect]
     Active Substance: HEPARIN SODIUM
     Indication: Anticoagulant therapy
     Dosage: 50 ML (MILLILITER), ONCE EVERY DAY (DOSAGE FORM: NOT REPORTED)
     Route: 042
  4. SODIUM CHLORIDE [Suspect]
     Active Substance: SODIUM CHLORIDE
     Indication: Nutritional supplementation
     Dosage: AT AN UNSPECIFIED DOSE AND FREQUENCY (DOSAGE FORM: NOT SPECIFIED)
     Route: 065
  5. SODIUM BICARBONATE [Suspect]
     Active Substance: SODIUM BICARBONATE
     Indication: Product used for unknown indication
     Dosage: AT AN UNSPECIFIED DOSE AND FREQUENCY (DOSAGE FORM: NOT SPECIFIED)
     Route: 065
  6. ANTICOAGULANT SODIUM CITRATE [Suspect]
     Active Substance: SODIUM CITRATE
     Indication: Thrombosis
     Dosage: 2.5 ML (MILLILITRE) AT AN UNSPECIFIED FREQUENCY
     Route: 065
  7. ANTICOAGULANT SODIUM CITRATE [Suspect]
     Active Substance: SODIUM CITRATE
     Indication: Anticoagulant therapy
     Dosage: 2.5 MG (MILLIGRAM) ONCE EVERY DAY
     Route: 065
  8. ANTICOAGULANT SODIUM CITRATE [Suspect]
     Active Substance: SODIUM CITRATE
     Dosage: 2.5 ML (MILLILITRE) ONCE EVERY DAY, (DOSAGE FORM: NOT SPECIFIED)
     Route: 065
  9. ANTICOAGULANT SODIUM CITRATE [Suspect]
     Active Substance: SODIUM CITRATE
     Dosage: 2 GM (GRAM) ONCE EVERY DAY
     Route: 065
  10. ANTICOAGULANT SODIUM CITRATE [Suspect]
     Active Substance: SODIUM CITRATE
     Dosage: 2 GM (GRAM) AT AN UNSPECIFIED FREQUENCY
     Route: 065
  11. ALUMINUM HYDROXIDE\MAGNESIUM HYDROXIDE [Suspect]
     Active Substance: ALUMINUM HYDROXIDE\MAGNESIUM HYDROXIDE
     Indication: Constipation
     Dosage: 133 ML (MILLILITRE)
     Route: 054
  12. ALUMINUM HYDROXIDE\MAGNESIUM HYDROXIDE [Suspect]
     Active Substance: ALUMINUM HYDROXIDE\MAGNESIUM HYDROXIDE
     Dosage: 133 (MG) MILLIGRAM
     Route: 065
  13. ASCORBIC ACID\POLYETHYLENE GLYCOL 3350\POTASSIUM CHLORIDE\SODIUM ASCOR [Suspect]
     Active Substance: ASCORBIC ACID\POLYETHYLENE GLYCOL 3350\POTASSIUM CHLORIDE\SODIUM ASCORBATE\SODIUM CHLORIDE\SODIUM SU
     Indication: Nutritional supplementation
     Dosage: 1.0 DF (DOSAGE FORMS) ONCE EVERY SIX HOURS
     Route: 065
  14. ASCORBIC ACID\POLYETHYLENE GLYCOL 3350\POTASSIUM CHLORIDE\SODIUM ASCOR [Suspect]
     Active Substance: ASCORBIC ACID\POLYETHYLENE GLYCOL 3350\POTASSIUM CHLORIDE\SODIUM ASCORBATE\SODIUM CHLORIDE\SODIUM SU
     Indication: Iron deficiency
     Dosage: 17 MG (MILLIGRAM) ONCE EVERY DAY
     Route: 048
  15. ASCORBIC ACID\POLYETHYLENE GLYCOL 3350\POTASSIUM CHLORIDE\SODIUM ASCOR [Suspect]
     Active Substance: ASCORBIC ACID\POLYETHYLENE GLYCOL 3350\POTASSIUM CHLORIDE\SODIUM ASCORBATE\SODIUM CHLORIDE\SODIUM SU
     Indication: Constipation
     Dosage: UNK
     Route: 048
  16. ASCORBIC ACID\POLYETHYLENE GLYCOL 3350\POTASSIUM CHLORIDE\SODIUM ASCOR [Suspect]
     Active Substance: ASCORBIC ACID\POLYETHYLENE GLYCOL 3350\POTASSIUM CHLORIDE\SODIUM ASCORBATE\SODIUM CHLORIDE\SODIUM SU
     Dosage: AT AN UNSPECIFIED DOSE ONCE EVERY DAY
     Route: 048
  17. ASCORBIC ACID\POLYETHYLENE GLYCOL 3350\POTASSIUM CHLORIDE\SODIUM ASCOR [Suspect]
     Active Substance: ASCORBIC ACID\POLYETHYLENE GLYCOL 3350\POTASSIUM CHLORIDE\SODIUM ASCORBATE\SODIUM CHLORIDE\SODIUM SU
     Dosage: 3 MG (MILLIGRAM) ONCE EVERY WEEK
     Route: 048
  18. ASCORBIC ACID\POLYETHYLENE GLYCOL 3350\POTASSIUM CHLORIDE\SODIUM ASCOR [Suspect]
     Active Substance: ASCORBIC ACID\POLYETHYLENE GLYCOL 3350\POTASSIUM CHLORIDE\SODIUM ASCORBATE\SODIUM CHLORIDE\SODIUM SU
     Dosage: 17 MG (MILLIGRAM) AT AN UNSPECIFIED FREQUENCY
     Route: 048
  19. ASCORBIC ACID\POLYETHYLENE GLYCOL 3350\POTASSIUM CHLORIDE\SODIUM ASCOR [Suspect]
     Active Substance: ASCORBIC ACID\POLYETHYLENE GLYCOL 3350\POTASSIUM CHLORIDE\SODIUM ASCORBATE\SODIUM CHLORIDE\SODIUM SU
     Dosage: 12 GM (GRAM) AT AN UNSPECIFIED FREQUENCY
     Route: 042
  20. ASCORBIC ACID\POLYETHYLENE GLYCOL 3350\POTASSIUM CHLORIDE\SODIUM ASCOR [Suspect]
     Active Substance: ASCORBIC ACID\POLYETHYLENE GLYCOL 3350\POTASSIUM CHLORIDE\SODIUM ASCORBATE\SODIUM CHLORIDE\SODIUM SU
     Dosage: 3 MG (MILLIGRAM) ONCE EVERY WEEK
     Route: 065
  21. ASCORBIC ACID\POLYETHYLENE GLYCOL 3350\POTASSIUM CHLORIDE\SODIUM ASCOR [Suspect]
     Active Substance: ASCORBIC ACID\POLYETHYLENE GLYCOL 3350\POTASSIUM CHLORIDE\SODIUM ASCORBATE\SODIUM CHLORIDE\SODIUM SU
     Dosage: 17 GM (GRAM) ONCE EVERY DAY
     Route: 048
  22. ASCORBIC ACID\POLYETHYLENE GLYCOL 3350\POTASSIUM CHLORIDE\SODIUM ASCOR [Suspect]
     Active Substance: ASCORBIC ACID\POLYETHYLENE GLYCOL 3350\POTASSIUM CHLORIDE\SODIUM ASCORBATE\SODIUM CHLORIDE\SODIUM SU
     Dosage: 2.5 ML (MILLILITRE) AT AN UNSPECIFIED FREQUENCY
     Route: 065
  23. ASCORBIC ACID\POLYETHYLENE GLYCOL 3350\POTASSIUM CHLORIDE\SODIUM ASCOR [Suspect]
     Active Substance: ASCORBIC ACID\POLYETHYLENE GLYCOL 3350\POTASSIUM CHLORIDE\SODIUM ASCORBATE\SODIUM CHLORIDE\SODIUM SU
     Dosage: 2.5 ML (MILLILITRE) AT AN UNSPECIFIED FREQUENCY
     Route: 042
  24. ASCORBIC ACID\POLYETHYLENE GLYCOL 3350\POTASSIUM CHLORIDE\SODIUM ASCOR [Suspect]
     Active Substance: ASCORBIC ACID\POLYETHYLENE GLYCOL 3350\POTASSIUM CHLORIDE\SODIUM ASCORBATE\SODIUM CHLORIDE\SODIUM SU
     Dosage: 17 GM (GRAM) ONCE EVERY DAY
     Route: 065
  25. ASCORBIC ACID\POLYETHYLENE GLYCOL 3350\POTASSIUM CHLORIDE\SODIUM ASCOR [Suspect]
     Active Substance: ASCORBIC ACID\POLYETHYLENE GLYCOL 3350\POTASSIUM CHLORIDE\SODIUM ASCORBATE\SODIUM CHLORIDE\SODIUM SU
     Dosage: 3 MG (MILLIGRAM) AT AN UNSPECIFIED FREQUENCY
     Route: 048
  26. CALCIUM CARBONATE [Suspect]
     Active Substance: CALCIUM CARBONATE
     Indication: Product used for unknown indication
     Dosage: AT AN UNSPECIFIED DOSE AND FREQUENCY (DOSAGE FORM: NOT SPECIFIED)
     Route: 065
  27. CALCIUM CHLORIDE\DEXTROSE\POTASSIUM CHLORIDE\SODIUM ACETATE\SODIUM CHL [Suspect]
     Active Substance: CALCIUM CHLORIDE\DEXTROSE\POTASSIUM CHLORIDE\SODIUM ACETATE\SODIUM CHLORIDE
     Indication: Product used for unknown indication
     Dosage: UNK
     Route: 065
  28. DEXILANT [Suspect]
     Active Substance: DEXLANSOPRAZOLE
     Indication: Product used for unknown indication
     Dosage: DOSAGE FORM - CAPSULE, DELAYED RELEASE, 60 MG (MILLIGRAM) ONCE EVERY DAY
     Route: 048
  29. DEXLANSOPRAZOLE [Suspect]
     Active Substance: DEXLANSOPRAZOLE
     Indication: Product used for unknown indication
     Dosage: 6 DF (DOSAGE FORMS) ONCE EVERY SIX HOURS
     Route: 048
  30. DEXLANSOPRAZOLE [Suspect]
     Active Substance: DEXLANSOPRAZOLE
     Indication: Product used for unknown indication
     Dosage: DOSAGE FORM - CAPSULE, DELAYED RELEASE, 60 MG (MILLIGRAM) ONCE EVERY DAY
     Route: 048
  31. DEXTROSE [Suspect]
     Active Substance: DEXTROSE\DEXTROSE MONOHYDRATE
     Indication: Off label use
     Dosage: 1 DF (DOSAGE FORMS) ONCE EVERY DAY
     Route: 042
  32. DEXTROSE [Suspect]
     Active Substance: DEXTROSE\DEXTROSE MONOHYDRATE
     Indication: Nutritional supplementation
     Dosage: 12.5 GM (GRAM) ONCE EVERY DAY, DOSAGE FORM: NOT SPECIFIED
     Route: 042
  33. DEXTROSE [Suspect]
     Active Substance: DEXTROSE\DEXTROSE MONOHYDRATE
     Indication: Intentional product misuse
     Dosage: 12.5 MG (MILLIGRAM) ONCE EVERY DAY
     Route: 042
  34. DEXTROSE [Suspect]
     Active Substance: DEXTROSE\DEXTROSE MONOHYDRATE
     Dosage: 12 GM (GRAM) ONCE EVERY DAY
     Route: 042
  35. DEXTROSE\SODIUM CHLORIDE [Suspect]
     Active Substance: DEXTROSE\SODIUM CHLORIDE
     Indication: Nutritional supplementation
     Dosage: 12.5 GM (GRAM) ONCE EVERY DAY
     Route: 042
  36. DEXTROSE\SODIUM CHLORIDE [Suspect]
     Active Substance: DEXTROSE\SODIUM CHLORIDE
     Dosage: 12.5 MG (MILLIGRAM) AT AN UNSPECIFIED FRQUNCY
     Route: 042
  37. LANSOPRAZOLE [Suspect]
     Active Substance: LANSOPRAZOLE
     Indication: Intentional product misuse
     Dosage: AT AN UNSPECIFIED DOSE ONCE EVERY DAY
     Route: 048
  38. LANSOPRAZOLE [Suspect]
     Active Substance: LANSOPRAZOLE
     Indication: Antacid therapy
  39. LANSOPRAZOLE [Suspect]
     Active Substance: LANSOPRAZOLE
     Indication: Intentional product misuse
     Dosage: DOSAGE FORM - CAPSULE, DELAYED RELEASE, 30 MG (MILLIGRAM) ONCE EVERY DAY
     Route: 048
  40. LANSOPRAZOLE [Suspect]
     Active Substance: LANSOPRAZOLE
     Indication: Antacid therapy
  41. ELECTROLYTES NOS\POLYETHYLENE GLYCOLS [Suspect]
     Active Substance: ELECTROLYTES NOS\POLYETHYLENE GLYCOLS
     Indication: Constipation
     Dosage: 17 MG (MILLIGRAM) ONCE EVERY DAY
     Route: 048
  42. ELECTROLYTES NOS\POLYETHYLENE GLYCOLS [Suspect]
     Active Substance: ELECTROLYTES NOS\POLYETHYLENE GLYCOLS
     Dosage: 2.5 ML (MILLILITRE) AT AN UNSPECIFIED FREQUENCY
     Route: 042
  43. ELECTROLYTES NOS\POLYETHYLENE GLYCOLS [Suspect]
     Active Substance: ELECTROLYTES NOS\POLYETHYLENE GLYCOLS
     Dosage: 17 GM (GRAM) ONCE EVERY DAY
     Route: 048
  44. ELECTROLYTES NOS\POLYETHYLENE GLYCOLS [Suspect]
     Active Substance: ELECTROLYTES NOS\POLYETHYLENE GLYCOLS
     Dosage: AT AN UNSPECIFIED DOSE ONCE EVERY DAY
     Route: 048
  45. ELECTROLYTES NOS\POLYETHYLENE GLYCOLS [Suspect]
     Active Substance: ELECTROLYTES NOS\POLYETHYLENE GLYCOLS
     Dosage: 5 MG (MILLIGRAM) AT AN UNSPECIFIED FREQUENCY
     Route: 065
  46. ELECTROLYTES NOS\POLYETHYLENE GLYCOLS [Suspect]
     Active Substance: ELECTROLYTES NOS\POLYETHYLENE GLYCOLS
     Dosage: 3 MG (MILLIGRAM) ONCE EVERY WEEK
     Route: 048
  47. METRONIDAZOLE [Suspect]
     Active Substance: METRONIDAZOLE
     Indication: Intentional product misuse
     Dosage: 500 MG (MILLIGRAM) THRICE EVERY DAY
     Route: 048
  48. METRONIDAZOLE [Suspect]
     Active Substance: METRONIDAZOLE
     Indication: Bacterial infection
     Dosage: 1500 MG (MILLIGRAM) ONCE EVERY DAY
     Route: 048
  49. METRONIDAZOLE [Suspect]
     Active Substance: METRONIDAZOLE
     Dosage: AT AN UNSPECIFIED DOSE THRICE EVERY DAY
     Route: 065
  50. METRONIDAZOLE [Suspect]
     Active Substance: METRONIDAZOLE
     Dosage: AT AN UNSPECIFIED DOSE ONCE EVERY THREE HOURS
     Route: 048
  51. METRONIDAZOLE [Suspect]
     Active Substance: METRONIDAZOLE
     Dosage: 500 MG (MILLIGRAM) AT AN UNSPECIFIED FREQUENCY
     Route: 048
  52. METRONIDAZOLE [Suspect]
     Active Substance: METRONIDAZOLE
     Dosage: 500 UG (MICROGRAM) ONCE EVERY DAY
     Route: 048
  53. METRONIDAZOLE [Suspect]
     Active Substance: METRONIDAZOLE
     Dosage: 500 MG (MILLIGRAM) ONCE EVERY DAY
     Route: 048
  54. METRONIDAZOLE [Suspect]
     Active Substance: METRONIDAZOLE
     Dosage: 1500 UG (MICROGRAM) ONCE EVERY DAY
     Route: 048
  55. METRONIDAZOLE [Suspect]
     Active Substance: METRONIDAZOLE
     Dosage: 1500 MG (MILLIGRAM) THRICE EVERY DAY
     Route: 048
  56. METRONIDAZOLE [Suspect]
     Active Substance: METRONIDAZOLE
     Dosage: 500 MG (MILLIGRAM) ONCE EVERY EIGHT HOURS
     Route: 048
  57. METRONIDAZOLE [Suspect]
     Active Substance: METRONIDAZOLE
     Indication: Intentional product misuse
     Dosage: 500 UG (MICROGRAM) ONCE EVERY EIGHT HOURS, DOSAGE FORM: NOT SPECIFIED
     Route: 048
  58. METRONIDAZOLE [Suspect]
     Active Substance: METRONIDAZOLE
     Indication: Bacterial infection
  59. ONDANSETRON [Suspect]
     Active Substance: ONDANSETRON
     Indication: Vomiting
     Dosage: 40 MG (MILLIGRAM) ONCE EVERY EIGHT HOURS
     Route: 042
  60. ONDANSETRON [Suspect]
     Active Substance: ONDANSETRON
     Indication: Nausea
     Dosage: 4 MG (MILLIGRAM) ONCE EVERY DAY
     Route: 042
  61. ONDANSETRON [Suspect]
     Active Substance: ONDANSETRON
     Dosage: 40 MG (MILLIGRAM) ONCE EVERY EIGHT HOURS
     Route: 065
  62. ONDANSETRON [Suspect]
     Active Substance: ONDANSETRON
     Dosage: 41.14 MG (MILLIGRAM) ONCE EVERY EIGHT HOURS
     Route: 042
  63. ONDANSETRON [Suspect]
     Active Substance: ONDANSETRON
     Dosage: 12 MG (MILLIGRAM) ONCE EVERY DAY
     Route: 042
  64. ONDANSETRON [Suspect]
     Active Substance: ONDANSETRON
     Dosage: 1 DF (DOSAGE FORMS) ONCE EVERY EIGHT HOURS
     Route: 042
  65. ONDANSETRON [Suspect]
     Active Substance: ONDANSETRON
     Dosage: 4 MG (MILLIGRAM) AT AN UNSPECIFIED FREQUENCY
     Route: 065
  66. ONDANSETRON [Suspect]
     Active Substance: ONDANSETRON
     Dosage: AT AN UNSPECIFIED DOSE ONCE EVERY EIGHT HOURS
     Route: 065
  67. ONDANSETRON [Suspect]
     Active Substance: ONDANSETRON
     Dosage: 1 DF (DOSAGE FORMS) AT AN UNSPECIFIED FREQUENCY
     Route: 065
  68. ONDANSETRON [Suspect]
     Active Substance: ONDANSETRON
     Dosage: 41.14 MG (MILLIGRAM) AT AN UNSPECIFIED FREQUENCY
     Route: 065
  69. ONDANSETRON [Suspect]
     Active Substance: ONDANSETRON
     Dosage: 36 MG (MILLIGRAM) ONCE EVERY DAY
     Route: 042
  70. ONDANSETRON [Suspect]
     Active Substance: ONDANSETRON
     Dosage: 41.14 MG (MILLIGRAM) AT AN UNSPECIFIED FREQUENCY
     Route: 017
  71. ONDANSETRON [Suspect]
     Active Substance: ONDANSETRON
     Dosage: 4 MG (MILLIGRAM) ONCE EVERY DAY
     Route: 065
  72. ONDANSETRON [Suspect]
     Active Substance: ONDANSETRON
     Dosage: 12 MG (MILLIGRAM) ONCE EVERY EIGHT HOUR
     Route: 065
  73. ONDANSETRON [Suspect]
     Active Substance: ONDANSETRON
     Dosage: 12 MG (MILLIGRAM) THRICE EVERY DAY
     Route: 042
  74. ONDANSETRON [Suspect]
     Active Substance: ONDANSETRON
     Dosage: AT AN UNSPECIFIED DOSE AND FREQUENCY
     Route: 042
  75. ONDANSETRON [Suspect]
     Active Substance: ONDANSETRON
     Dosage: 4 MG (MILLIGRAM) ONCE EVERY EIGHT HOURS
     Route: 065
  76. ONDANSETRON [Suspect]
     Active Substance: ONDANSETRON
     Dosage: 12 MG (MILLIGRAM) AT AN UNSPECIFIED FREQUENCY
     Route: 042
  77. ONDANSETRON [Suspect]
     Active Substance: ONDANSETRON
     Dosage: AT AN UNSPECIFIED DOSE ONCE EVERY EIGHT HOURS
     Route: 042
  78. ONDANSETRON [Suspect]
     Active Substance: ONDANSETRON
     Dosage: 40 MG (MILLIGRAM) THRICE EVERY DAY
     Route: 042
  79. ONDANSETRON [Suspect]
     Active Substance: ONDANSETRON
     Dosage: 8 MG (MILLIGRAM) ONCE EVERY EIGHT HOURS
     Route: 042
  80. ONDANSETRON [Suspect]
     Active Substance: ONDANSETRON
     Dosage: 24 MG (MILLIGRAM) ONCE EVERY EIGHT HOURS
     Route: 042
  81. ONDANSETRON [Suspect]
     Active Substance: ONDANSETRON
     Dosage: 41.4 MG (MILLIGRAM) AT AN UNSPECIFIED FREQUENCY
     Route: 042
  82. ONDANSETRON [Suspect]
     Active Substance: ONDANSETRON
     Dosage: 4 MG (MILLIGRAM) ONCE EVERY EIGHT HOURS
     Route: 042
  83. ONDANSETRON [Suspect]
     Active Substance: ONDANSETRON
     Dosage: 1 DF (DOSAGE FORM) AT AN UNSPECIFIED FREQUENCY
     Route: 042
  84. ONDANSETRON [Suspect]
     Active Substance: ONDANSETRON
     Dosage: 41.4 MG (MILLIGRAM) ONCE EVERY EIGHT HOURS
     Route: 042
  85. ONDANSETRON [Suspect]
     Active Substance: ONDANSETRON
     Dosage: 14.14 MG (MILLIGRAM) ONCE EVERY EIGHT HOURS
     Route: 042
  86. ONDANSETRON [Suspect]
     Active Substance: ONDANSETRON
     Dosage: 4 MG (MILLIGRAM) THRICE EVERY DAY
     Route: 042
  87. ONDANSETRON [Suspect]
     Active Substance: ONDANSETRON
     Dosage: 12 DF (DOSAGE FORMS) ONCE EVERY DAY
     Route: 065
  88. ONDANSETRON [Suspect]
     Active Substance: ONDANSETRON
     Dosage: 1 DF (DOSAGE FORMS) ONCE EVERY DAY
     Route: 042
  89. ONDANSETRON [Suspect]
     Active Substance: ONDANSETRON
     Dosage: 40 MG (MILLIGRAM) ONCE EVERY DAY
     Route: 065
  90. ONDANSETRON [Suspect]
     Active Substance: ONDANSETRON
     Dosage: AT AN UNSPECIFIED DOSE ONCE EVERY THREE HOURS
     Route: 042
  91. ONDANSETRON [Suspect]
     Active Substance: ONDANSETRON
     Dosage: 36 MG (MILLIGRAM) ONCE EVERY EIGHT HOURS
     Route: 042
  92. ONDANSETRON [Suspect]
     Active Substance: ONDANSETRON
     Dosage: 1 DF (DOSAGE FORMS) ONCE EVERY DAY
     Route: 048
  93. ONDANSETRON [Suspect]
     Active Substance: ONDANSETRON
     Dosage: 1 DF (DOSAGE FORM) ONCE EVERY SIX HOURS
     Route: 042
  94. ONDANSETRON [Suspect]
     Active Substance: ONDANSETRON
     Dosage: 36 MG (MILLIGRAM) ONCE EVERY EIGHT HOURS
     Route: 065
  95. ONDANSETRON [Suspect]
     Active Substance: ONDANSETRON
     Dosage: 108 MG (MILLIGRAM) AT AN UNSPECIFIED FREQUENCY
     Route: 042
  96. ONDANSETRON [Suspect]
     Active Substance: ONDANSETRON
     Dosage: 12 DF (DOSAGE FORMS) AT AN UNSPECIFIED FREQUENCY
     Route: 042
  97. ONDANSETRON [Suspect]
     Active Substance: ONDANSETRON
     Dosage: 8 MG (MILLIGRAM) ONCE EVERY EIGHT HOURS
     Route: 065
  98. ONDANSETRON [Suspect]
     Active Substance: ONDANSETRON
     Dosage: 36 MG (MILLIGRAM) THRICE EVERY DAY
     Route: 042
  99. ONDANSETRON [Suspect]
     Active Substance: ONDANSETRON
     Dosage: 41.14 MG (MILLIGRAM) AT AN UNSPECIFIED FREQUENCY
     Route: 042
  100. ONDANSETRON [Suspect]
     Active Substance: ONDANSETRON
     Dosage: 12 MG (MILLIGRAM) ONCE EVERY EIGHT HOURS
     Route: 042
  101. ONDANSETRON [Suspect]
     Active Substance: ONDANSETRON
     Indication: Vomiting
     Dosage: 12 MG (MILLIGRAM) ONCE EVERY EIGHT HOUR, (DOSAGE FORM: NOT SPECIFIED)
     Route: 042
  102. ONDANSETRON [Suspect]
     Active Substance: ONDANSETRON
     Indication: Nausea
  103. PHYTONADIONE [Suspect]
     Active Substance: PHYTONADIONE
     Indication: Vitamin supplementation
     Dosage: 5 MG (MILLIGRAM) ONCE EVERY DAY, (DOSAGE FORM: NOT SPECIFIED)
     Route: 042
  104. PHYTONADIONE [Suspect]
     Active Substance: PHYTONADIONE
     Indication: Off label use
     Dosage: UNK
     Route: 065
  105. POTASSIUM CHLORIDE [Suspect]
     Active Substance: POTASSIUM CHLORIDE
     Indication: Constipation
     Dosage: 17 GM (GRAM) ONCE EVERY DAY
     Route: 048
  106. POTASSIUM CHLORIDE [Suspect]
     Active Substance: POTASSIUM CHLORIDE
     Dosage: 17 MG (MILLIGRAM) ONCE EVERY DAY, (DOSAGE FORM: NOT SPECIFIED)
     Route: 048
  107. PREVACID [Suspect]
     Active Substance: LANSOPRAZOLE
     Indication: Antacid therapy
     Dosage: 30 MG (MILLIGRAM) AT AN UNSPECIFIED FREQUENCY, (DOSAGE FORM: NOT SPECIFIED)
     Route: 065
  108. PREVACID [Suspect]
     Active Substance: LANSOPRAZOLE
     Dosage: UNK
     Route: 048
  109. THEOPHYLLINE [Suspect]
     Active Substance: THEOPHYLLINE
     Indication: Product used for unknown indication
     Dosage: AT AN UNSPECIFIED DOSE AND FREQUENCY (DOSAGE FORM: NOT SPECIFIED)
     Route: 065
  110. VITAMIN C [Suspect]
     Active Substance: ASCORBIC ACID
     Indication: Product used for unknown indication
     Dosage: UNK
     Route: 065

REACTIONS (1)
  - Ventricular fibrillation [Fatal]
